FAERS Safety Report 5414823-3 (Version None)
Quarter: 2007Q3

REPORT INFORMATION
  Report Type: 
  Country: None (occurrence: None)
  Receive Date: 20070813
  Receipt Date: 20070802
  Transmission Date: 20080115
  Serious: Yes (Other)
  Sender: FDA-Public Use
  Company Number: 2007SP011720

PATIENT
  Age: 53 Year
  Sex: Female

DRUGS (3)
  1. PEG-INTRON [Suspect]
     Indication: HEPATITIS C
     Dosage: SC
     Route: 058
     Dates: start: 20070528
  2. RIBASPHERE [Suspect]
     Indication: HEPATITIS C
     Dosage: PO
     Route: 048
     Dates: start: 20070528
  3. NEURONTIN [Suspect]
     Indication: CHONDROPATHY

REACTIONS (21)
  - BRONCHITIS [None]
  - CANDIDIASIS [None]
  - CHAPPED LIPS [None]
  - CHONDROPATHY [None]
  - CONDITION AGGRAVATED [None]
  - DEHYDRATION [None]
  - DIARRHOEA HAEMORRHAGIC [None]
  - DRY SKIN [None]
  - DYSARTHRIA [None]
  - DYSPHAGIA [None]
  - FATIGUE [None]
  - FEELING ABNORMAL [None]
  - HEART RATE IRREGULAR [None]
  - INJECTION SITE RASH [None]
  - MITRAL VALVE PROLAPSE [None]
  - MOUTH ULCERATION [None]
  - ORAL MUCOSAL BLISTERING [None]
  - PANIC ATTACK [None]
  - PHARYNGOLARYNGEAL PAIN [None]
  - RASH MACULO-PAPULAR [None]
  - SWOLLEN TONGUE [None]
